FAERS Safety Report 17075847 (Version 1)
Quarter: 2019Q4

REPORT INFORMATION
  Report Type: Spontaneous
  Country: SE (occurrence: SE)
  Receive Date: 20191126
  Receipt Date: 20191126
  Transmission Date: 20200122
  Serious: Yes (Hospitalization)
  Sender: FDA-Public Use
  Company Number: SE-ASTRAZENECA-2019SF64816

PATIENT
  Age: 19 Year
  Sex: Male

DRUGS (6)
  1. FLUOXETINE [Suspect]
     Active Substance: FLUOXETINE HYDROCHLORIDE
     Dosage: COULD MAXIMALLY HAVE TAKEN 6X20MG
     Route: 048
     Dates: start: 20180329, end: 20180329
  2. OLANZAPINE. [Suspect]
     Active Substance: OLANZAPINE
     Dosage: COULD MAXIMALLY HAVE TAKEN 6X2,5MG
     Route: 048
     Dates: start: 20180329, end: 20180329
  3. OMEPRAZOLE. [Suspect]
     Active Substance: OMEPRAZOLE
     Dosage: COULD MAXIMALLY HAVE TAKEN AN AMOUNT OF 6
     Route: 048
     Dates: start: 20180329, end: 20180329
  4. LERGIGAN (PROMETHAZINE HYDROCHLORIDE) [Suspect]
     Active Substance: PROMETHAZINE HYDROCHLORIDE
     Dosage: COULD MAXIMALLY HAVE TAKEN 6X5MG
     Route: 048
     Dates: start: 20180329, end: 20180329
  5. IMOVANE [Suspect]
     Active Substance: ZOPICLONE
     Dosage: COULD MAXIMALLY HAVE TAKEN 6X2,5MG
     Route: 048
     Dates: start: 20180329, end: 20180329
  6. PROPAVAN [Suspect]
     Active Substance: PROPIOMAZINE
     Dosage: COULD MAXIMALLY HAVE TAKEN 6X25MG
     Route: 048
     Dates: start: 20180329, end: 20180329

REACTIONS (3)
  - Depressed level of consciousness [Unknown]
  - Intentional overdose [Unknown]
  - Intentional self-injury [Unknown]

NARRATIVE: CASE EVENT DATE: 20180329
